FAERS Safety Report 19443607 (Version 4)
Quarter: 2022Q3

REPORT INFORMATION
  Report Type: Spontaneous
  Country: US (occurrence: US)
  Receive Date: 20210621
  Receipt Date: 20220203
  Transmission Date: 20221027
  Serious: Yes (Death, Other)
  Sender: FDA-Public Use
  Company Number: US-VERTEX PHARMACEUTICALS-2020-025514

PATIENT
  Age: 36 Year
  Sex: Male
  Weight: 93 kg

DRUGS (9)
  1. TRIKAFTA [Suspect]
     Active Substance: ELEXACAFTOR\IVACAFTOR\TEZACAFTOR
     Indication: Cystic fibrosis
     Dosage: 2 TAB AM, 1 TAB PM;
     Route: 048
     Dates: start: 20191108, end: 20220901
  2. PULMOZYME [Concomitant]
     Active Substance: DORNASE ALFA
  3. GEMCITABINE [Concomitant]
     Active Substance: GEMCITABINE
  4. VITAMIN D [Concomitant]
     Active Substance: VITAMIN D NOS
  5. CAYSTON [Concomitant]
     Active Substance: AZTREONAM
  6. CREON [Concomitant]
     Active Substance: PANCRELIPASE AMYLASE\PANCRELIPASE LIPASE\PANCRELIPASE PROTEASE
  7. NOVOLOG [Concomitant]
     Active Substance: INSULIN ASPART
  8. CISPLATIN [Concomitant]
     Active Substance: CISPLATIN
  9. URSODIOL [Concomitant]
     Active Substance: URSODIOL

REACTIONS (4)
  - Death [Fatal]
  - Lymphadenopathy [Unknown]
  - Liver disorder [Unknown]
  - Cholangiocarcinoma [Not Recovered/Not Resolved]

NARRATIVE: CASE EVENT DATE: 20201226
